FAERS Safety Report 11147900 (Version 2)
Quarter: 2016Q3

REPORT INFORMATION
  Report Type: Spontaneous
  Country: US (occurrence: US)
  Receive Date: 20150529
  Receipt Date: 20160831
  Transmission Date: 20161109
  Serious: Yes (Other)
  Sender: FDA-Public Use
  Company Number: US-TEVA-566450ACC

PATIENT
  Age: 27 Year
  Sex: Female

DRUGS (5)
  1. ORTHOM MICRONOR [Concomitant]
  2. VALTREX [Concomitant]
     Active Substance: VALACYCLOVIR HYDROCHLORIDE
     Dosage: UNKNOWN FORM STRENGTH
     Route: 065
  3. PARAGARD T 380A [Suspect]
     Active Substance: COPPER
     Indication: CONTRACEPTION
     Route: 015
     Dates: start: 20140107, end: 20150520
  4. PRENATAL VITAMINS [Concomitant]
     Active Substance: VITAMINS
     Dosage: UNKNOWN FORM STRENGTH
     Route: 065
  5. DIFLUCAN [Concomitant]
     Active Substance: FLUCONAZOLE

REACTIONS (2)
  - Pregnancy with contraceptive device [Unknown]
  - Normal newborn [Unknown]
